FAERS Safety Report 6781445-1 (Version None)
Quarter: 2010Q2

REPORT INFORMATION
  Report Type: 
  Country: None (occurrence: None)
  Receive Date: 20100617
  Receipt Date: 20100617
  Transmission Date: 20101027
  Serious: Yes (Death, Hospitalization)
  Sender: FDA-Public Use
  Company Number: None

PATIENT
  Sex: Male
  Weight: 113.3993 kg

DRUGS (7)
  1. VFEND [Suspect]
     Indication: FUNGAL INFECTION
     Dosage: 200MG TWICE DAILY
     Dates: start: 20091226, end: 20100113
  2. DEXAMETHASONE ACETATE [Concomitant]
  3. CELEXA [Concomitant]
  4. BACTRIM DS [Concomitant]
  5. FUROSEMIDE [Concomitant]
  6. ALLOPURINOL [Concomitant]
  7. FLOMAX [Concomitant]

REACTIONS (5)
  - DIZZINESS [None]
  - DYSPNOEA [None]
  - INFLUENZA LIKE ILLNESS [None]
  - RENAL FAILURE [None]
  - SEPTIC SHOCK [None]
